FAERS Safety Report 24249531 (Version 1)
Quarter: 2024Q3

REPORT INFORMATION
  Report Type: Spontaneous
  Country: US (occurrence: None)
  Receive Date: 20240823
  Receipt Date: 20240823
  Transmission Date: 20241016
  Serious: Yes (Hospitalization)
  Sender: Public
  Company Number: None

PATIENT
  Age: 67 Year
  Sex: Female
  Weight: 103.5 kg

DRUGS (10)
  1. OZEMPIC [Suspect]
     Active Substance: SEMAGLUTIDE
     Indication: Glucose tolerance impaired
     Dosage: OTHER QUANTITY : 1 INJECTION(S);?OTHER FREQUENCY : 1 WEEKLY;?OTHER ROUTE : INJECTION;?
     Route: 050
     Dates: start: 20240501, end: 20240612
  2. LYRICA [Concomitant]
  3. METFORMIN [Concomitant]
  4. irbersatin Hctz [Concomitant]
  5. MAGNESIUM [Concomitant]
  6. ASPIRIN [Concomitant]
     Active Substance: ASPIRIN
  7. VITAMIN B [Concomitant]
     Active Substance: VITAMIN B
  8. POTASSIUM [Concomitant]
  9. ZINC [Concomitant]
  10. CALCIUM [Concomitant]

REACTIONS (8)
  - Panic attack [None]
  - Tremor [None]
  - Palpitations [None]
  - Dizziness [None]
  - Hyperhidrosis [None]
  - Loss of consciousness [None]
  - Consciousness fluctuating [None]
  - Therapy cessation [None]

NARRATIVE: CASE EVENT DATE: 20240612
